FAERS Safety Report 6073887-7 (Version None)
Quarter: 2009Q1

REPORT INFORMATION
  Report Type: 
  Country: None (occurrence: None)
  Receive Date: 20090209
  Receipt Date: 20090209
  Transmission Date: 20090719
  Serious: Yes (Other)
  Sender: FDA-Public Use
  Company Number: None

PATIENT
  Age: 43 Year
  Sex: Female
  Weight: 52.1637 kg

DRUGS (1)
  1. GABAPENTIN [Suspect]
     Indication: COMPLEX REGIONAL PAIN SYNDROME
     Dosage: 100MG 1 (JUST TOOK ONE PILL)
     Dates: start: 20090201, end: 20090201

REACTIONS (3)
  - PAIN IN EXTREMITY [None]
  - RASH [None]
  - URTICARIA [None]
